FAERS Safety Report 8307274-5 (Version None)
Quarter: 2012Q2

REPORT INFORMATION
  Report Type: 
  Country: None (occurrence: None)
  Receive Date: 20120424
  Receipt Date: 20120412
  Transmission Date: 20120825
  Serious: Yes (Hospitalization)
  Sender: FDA-Public Use
  Company Number: DK-JNJFOC-20120409838

PATIENT
  Age: 46 Year
  Sex: Male

DRUGS (3)
  1. ANTIHYPERTENSIVES [Concomitant]
     Indication: BLOOD PRESSURE INCREASED
     Route: 065
  2. PALEXIA DEPOT [Suspect]
     Indication: BACK PAIN
     Route: 048
  3. ANALGESICS [Concomitant]
     Indication: PAIN
     Route: 065

REACTIONS (1)
  - SUBILEUS [None]
